FAERS Safety Report 18956880 (Version 1)
Quarter: 2021Q1

REPORT INFORMATION
  Report Type: Spontaneous
  Country: US (occurrence: US)
  Receive Date: 20210301
  Receipt Date: 20210301
  Transmission Date: 20210420
  Serious: No
  Sender: FDA-Public Use
  Company Number: None

PATIENT
  Age: 57 Year
  Sex: Female
  Weight: 64.86 kg

DRUGS (1)
  1. ELETRIPTAN 40MG [Suspect]
     Active Substance: ELETRIPTAN
     Indication: MIGRAINE

REACTIONS (1)
  - Drug ineffective [None]
